FAERS Safety Report 16656095 (Version 1)
Quarter: 2019Q3

REPORT INFORMATION
  Report Type: Spontaneous
  Country: US (occurrence: US)
  Receive Date: 20190731
  Receipt Date: 20190731
  Transmission Date: 20191004
  Serious: Yes (Hospitalization)
  Sender: FDA-Public Use
  Company Number: None

PATIENT
  Age: 75 Year
  Sex: Female

DRUGS (8)
  1. MICARDIS 40/12.5MG TAB [Concomitant]
     Dates: start: 20190314
  2. LETROZOLE 2.5MG [Concomitant]
     Active Substance: LETROZOLE
     Dates: start: 20190307
  3. ZOFRAN 8MG [Concomitant]
     Dates: start: 20190306
  4. IBRANCE [Suspect]
     Active Substance: PALBOCICLIB
     Indication: BREAST CANCER METASTATIC
     Route: 048
     Dates: start: 20190626
  5. PROBIOTIC 4X [Concomitant]
     Dates: start: 20190314
  6. CALCIUM + D 1200MG [Concomitant]
     Dates: start: 20190314
  7. PROTONIX [Concomitant]
     Active Substance: PANTOPRAZOLE SODIUM
     Dates: start: 20190314
  8. ZOLOFT [Concomitant]
     Active Substance: SERTRALINE HYDROCHLORIDE
     Dates: start: 20190314

REACTIONS (1)
  - Pneumonia [None]

NARRATIVE: CASE EVENT DATE: 20190701
